FAERS Safety Report 14506473 (Version 1)
Quarter: 2018Q1

REPORT INFORMATION
  Report Type: Spontaneous
  Country: US (occurrence: US)
  Receive Date: 20180208
  Receipt Date: 20180208
  Transmission Date: 20180509
  Serious: Yes (Other)
  Sender: FDA-Public Use
  Company Number: None

PATIENT
  Age: 58 Year
  Sex: Male
  Weight: 77.11 kg

DRUGS (7)
  1. LISINOPRIL. [Suspect]
     Active Substance: LISINOPRIL
     Indication: BLOOD PRESSURE MEASUREMENT
     Dosage: 1-PILL 1-MORNING MOUTH
     Route: 048
     Dates: start: 20170920, end: 20171120
  2. ALBUTEROL. [Concomitant]
     Active Substance: ALBUTEROL
  3. LISINOPRIL. [Suspect]
     Active Substance: LISINOPRIL
     Indication: HYPERTENSION
     Dosage: 1-PILL 1-MORNING MOUTH
     Route: 048
     Dates: start: 20170920, end: 20171120
  4. AMLODIPINE [Concomitant]
     Active Substance: AMLODIPINE BESYLATE
  5. BEN-GAY [Concomitant]
     Active Substance: MENTHOL\METHYL SALICYLATE
  6. EXCEDRIN [Concomitant]
     Active Substance: ACETAMINOPHEN\ASPIRIN\CAFFEINE
  7. NY-QUIL [Concomitant]

REACTIONS (3)
  - Blood pressure increased [None]
  - Product substitution issue [None]
  - Loss of consciousness [None]

NARRATIVE: CASE EVENT DATE: 20171115
